FAERS Safety Report 7325807-2 (Version None)
Quarter: 2011Q1

REPORT INFORMATION
  Report Type: 
  Country: None (occurrence: None)
  Receive Date: 20110218
  Receipt Date: 20110215
  Transmission Date: 20110831
  Serious: Yes (Other)
  Sender: FDA-Public Use
  Company Number: 2011SP007215

PATIENT
  Age: 64 Year
  Sex: Male

DRUGS (8)
  1. FLOVENT [Concomitant]
  2. RESTORIL [Concomitant]
  3. VENTOLIN HFA [Concomitant]
  4. ATROVENT [Concomitant]
  5. REMERON [Suspect]
     Dosage: 7.5 MG; QD; PO
     Route: 048
  6. PARIET [Concomitant]
  7. CLONAZEPAM [Concomitant]
  8. VENTOLIN [Concomitant]

REACTIONS (19)
  - DELUSION [None]
  - LOGORRHOEA [None]
  - MANIA [None]
  - TACHYPHRENIA [None]
  - ABSTAINS FROM ALCOHOL [None]
  - INSOMNIA [None]
  - NECK PAIN [None]
  - PAIN IN EXTREMITY [None]
  - PSYCHOMOTOR HYPERACTIVITY [None]
  - BACK PAIN [None]
  - DYSPNOEA [None]
  - BIPOLAR DISORDER [None]
  - CONFUSIONAL STATE [None]
  - SLEEP DISORDER [None]
  - THINKING ABNORMAL [None]
  - ELEVATED MOOD [None]
  - FLIGHT OF IDEAS [None]
  - PRESSURE OF SPEECH [None]
  - WHEEZING [None]
